FAERS Safety Report 9657547 (Version 1)
Quarter: 2013Q4

REPORT INFORMATION
  Report Type: Spontaneous
  Country: US (occurrence: US)
  Receive Date: 20131030
  Receipt Date: 20131030
  Transmission Date: 20140711
  Serious: Yes (Other)
  Sender: FDA-Public Use
  Company Number: US-NAPPMUNDI-USA-2012-0081689

PATIENT
  Age: 26 Year
  Sex: Male

DRUGS (1)
  1. OXYCONTIN TABLETS [Suspect]
     Indication: SUBSTANCE ABUSE
     Dosage: UNK UNK, SEE TEXT

REACTIONS (11)
  - Drug dependence [Unknown]
  - Substance abuse [Unknown]
  - Drug withdrawal syndrome [Unknown]
  - Impaired work ability [Unknown]
  - General physical health deterioration [Unknown]
  - Formication [Unknown]
  - Weight decreased [Unknown]
  - Pyrexia [Unknown]
  - Nausea [Unknown]
  - Speech disorder [Unknown]
  - Malaise [Unknown]
